FAERS Safety Report 5957160-0 (Version None)
Quarter: 2008Q4

REPORT INFORMATION
  Report Type: 
  Country: None (occurrence: None)
  Receive Date: 20081118
  Receipt Date: 20081106
  Transmission Date: 20090506
  Serious: Yes (Life-Threatening)
  Sender: FDA-Public Use
  Company Number: JP-PFIZER INC-2008090269

PATIENT
  Age: 82 Year
  Sex: Female

DRUGS (2)
  1. ZYVOX [Suspect]
     Indication: STAPHYLOCOCCAL INFECTION
     Dosage: DAILY DOSE:1200MG
     Route: 042
     Dates: start: 20081004, end: 20081017
  2. COTRIM [Suspect]
     Indication: STAPHYLOCOCCAL INFECTION
     Dosage: TEXT:4 TABLETS
     Route: 048
     Dates: start: 20080929

REACTIONS (2)
  - BONE MARROW FAILURE [None]
  - HYPONATRAEMIA [None]
